FAERS Safety Report 13092790 (Version 1)
Quarter: 2017Q1

REPORT INFORMATION
  Report Type: Spontaneous
  Country: US (occurrence: US)
  Receive Date: 20170105
  Receipt Date: 20170105
  Transmission Date: 20170428
  Serious: Yes (Disabling)
  Sender: FDA-Public Use
  Company Number: None

PATIENT
  Age: 51 Year
  Sex: Female
  Weight: 81 kg

DRUGS (7)
  1. LEVOFLOXCIN 750 MG SANDOZ [Suspect]
     Active Substance: LEVOFLOXACIN
     Indication: RESPIRATORY TRACT INFECTION
     Dosage: ?          QUANTITY:10 TABLET(S);?
     Route: 048
     Dates: start: 20161109, end: 20161115
  2. PROAIR HFA [Concomitant]
     Active Substance: ALBUTEROL SULFATE
  3. NEBULIZER [Concomitant]
     Active Substance: DEVICE
  4. DEXILANT [Concomitant]
     Active Substance: DEXLANSOPRAZOLE
  5. TYLENOL [Concomitant]
     Active Substance: ACETAMINOPHEN
  6. SPIRONOLACTONE. [Concomitant]
     Active Substance: SPIRONOLACTONE
  7. FLOVENT [Concomitant]
     Active Substance: FLUTICASONE PROPIONATE

REACTIONS (5)
  - Palpitations [None]
  - Nervous system disorder [None]
  - Musculoskeletal discomfort [None]
  - Dyspnoea [None]
  - Memory impairment [None]

NARRATIVE: CASE EVENT DATE: 20161109
